FAERS Safety Report 18435930 (Version 1)
Quarter: 2020Q4

REPORT INFORMATION
  Report Type: Spontaneous
  Country: FR (occurrence: FR)
  Receive Date: 20201028
  Receipt Date: 20201028
  Transmission Date: 20210114
  Serious: Yes (Disabling, Other)
  Sender: FDA-Public Use
  Company Number: NVSC2020FR269876

PATIENT
  Age: 71 Year
  Sex: Female

DRUGS (9)
  1. LIDOCAINE. [Suspect]
     Active Substance: LIDOCAINE
     Indication: SPINAL COLUMN INJURY
  2. ESOMEPRAZOLE ZENTIVA [Suspect]
     Active Substance: ESOMEPRAZOLE
     Indication: PROPHYLAXIS AGAINST GASTROINTESTINAL ULCER
     Dosage: 20 MG,QD
     Route: 048
     Dates: start: 20200621
  3. PREDNISONE. [Suspect]
     Active Substance: PREDNISONE
     Indication: SPINAL COLUMN INJURY
  4. ESOMEPRAZOLE ZENTIVA [Suspect]
     Active Substance: ESOMEPRAZOLE
     Indication: SPINAL COLUMN INJURY
     Dosage: UNK
     Route: 065
     Dates: start: 20200630
  5. PARACETAMOL CODEINE [Suspect]
     Active Substance: ACETAMINOPHEN\CODEINE PHOSPHATE
     Indication: SPINAL COLUMN INJURY
     Dosage: 1 DF, QD (25MG/300MG)
     Route: 065
     Dates: start: 20200621
  6. LIDOCAINE. [Suspect]
     Active Substance: LIDOCAINE
     Indication: BACK PAIN
     Dosage: UNK
     Route: 062
     Dates: start: 20200621
  7. PREDNISONE. [Suspect]
     Active Substance: PREDNISONE
     Indication: BACK PAIN
     Dosage: 40 MG,QD
     Route: 065
     Dates: start: 20200621
  8. OMEPRAZOL ZENTIVA [Suspect]
     Active Substance: OMEPRAZOLE
     Indication: SPINAL COLUMN INJURY
     Dosage: UNK
     Route: 048
     Dates: start: 20200630, end: 202007
  9. PARACETAMOL CODEINE [Suspect]
     Active Substance: ACETAMINOPHEN\CODEINE PHOSPHATE
     Indication: BACK PAIN
     Dosage: UNK
     Route: 065
     Dates: start: 20200630

REACTIONS (9)
  - Proteus infection [Not Recovered/Not Resolved]
  - Genital infection female [Not Recovered/Not Resolved]
  - Pruritus [Not Recovered/Not Resolved]
  - Genital discomfort [Not Recovered/Not Resolved]
  - Erythema [Not Recovered/Not Resolved]
  - Fatigue [Not Recovered/Not Resolved]
  - Candida infection [Not Recovered/Not Resolved]
  - Rash [Not Recovered/Not Resolved]
  - Off label use [Recovered/Resolved]
